FAERS Safety Report 5888556-3 (Version None)
Quarter: 2008Q3

REPORT INFORMATION
  Report Type: 
  Country: None (occurrence: None)
  Receive Date: 20080918
  Receipt Date: 20080910
  Transmission Date: 20090109
  Serious: No
  Sender: FDA-Public Use
  Company Number: JP-B.I. PHARMACEUTICALS,INC./RIDGEFIELD-2008-BP-13226NB

PATIENT
  Age: 78 Year
  Sex: Male

DRUGS (9)
  1. BI-SIFROL TABLETS [Suspect]
     Indication: PARKINSON'S DISEASE
     Dosage: .25MG
     Route: 048
     Dates: start: 20080126
  2. MADOPAR [Suspect]
     Indication: PARKINSON'S DISEASE
     Dosage: 300MG
     Route: 048
  3. ASPIRIN [Suspect]
     Indication: CEREBRAL INFARCTION
     Dosage: 100MG
     Route: 048
  4. AVAPRO [Suspect]
     Indication: HYPERTENSION
     Dosage: 100MG
     Route: 048
  5. REVINBACE (ENALAPRIL MALEATE) [Concomitant]
     Indication: HYPERTENSION
     Dosage: 5MG
     Route: 048
  6. AMLODIPINE BESYLATE [Concomitant]
     Indication: HYPERTENSION
     Dosage: 2.5MG
     Route: 048
  7. LASIX [Concomitant]
     Indication: POLYURIA
     Dosage: 20MG
     Route: 048
  8. URALYT-U (POTASSIUM CITRATE_SODIUM CITRATE) [Concomitant]
     Indication: HYPERURICAEMIA
     Dosage: 2G
     Route: 048
  9. ANZIEF [Concomitant]
     Indication: HYPERURICAEMIA
     Dosage: 100MG
     Route: 048

REACTIONS (5)
  - FEELING COLD [None]
  - INFECTION [None]
  - LIP DISCOLOURATION [None]
  - PYREXIA [None]
  - TREMOR [None]
